FAERS Safety Report 10557380 (Version 1)
Quarter: 2014Q4

REPORT INFORMATION
  Report Type: Spontaneous
  Country: US (occurrence: None)
  Receive Date: 20141030
  Receipt Date: 20141030
  Transmission Date: 20150529
  Serious: No
  Sender: FDA-Public Use
  Company Number: None

PATIENT
  Age: 29 Year
  Sex: Female
  Weight: 57.15 kg

DRUGS (1)
  1. MIRENA [Suspect]
     Active Substance: LEVONORGESTREL
     Indication: CONTRACEPTION
     Dosage: IUD PLACED FOR 5 YEARS; ONCE EVERY 5 YEARS
     Route: 067
     Dates: start: 20051223, end: 20140826

REACTIONS (3)
  - Dyspareunia [None]
  - Marital problem [None]
  - Quality of life decreased [None]
